FAERS Safety Report 6284407-6 (Version None)
Quarter: 2009Q3

REPORT INFORMATION
  Report Type: 
  Country: None (occurrence: None)
  Receive Date: 20090727
  Receipt Date: 20090720
  Transmission Date: 20100115
  Serious: Yes (Death)
  Sender: FDA-Public Use
  Company Number: DE-JNJFOC-20090707287

PATIENT
  Age: 68 Year
  Sex: Female

DRUGS (5)
  1. REOPRO [Suspect]
     Indication: ARTERIOGRAM CORONARY
     Route: 016
  2. REOPRO [Suspect]
     Indication: MYOCARDIAL INFARCTION
     Route: 016
  3. ACETYLSALICYLIC ACID [Concomitant]
  4. PLAVIX [Concomitant]
  5. HEPARIN [Concomitant]

REACTIONS (2)
  - CEREBRAL HAEMORRHAGE [None]
  - INCORRECT ROUTE OF DRUG ADMINISTRATION [None]
